FAERS Safety Report 6112452-X (Version None)
Quarter: 2009Q1

REPORT INFORMATION
  Report Type: 
  Country: None (occurrence: None)
  Receive Date: 20090311
  Receipt Date: 20090311
  Transmission Date: 20090719
  Serious: Yes (Life-Threatening)
  Sender: FDA-Public Use
  Company Number: None

PATIENT
  Age: 59 Year
  Sex: Male
  Weight: 57.6068 kg

DRUGS (1)
  1. LAMOTRIGINE [Suspect]
     Indication: EPILEPSY
     Dosage: 300MG BY MOUTH TWICE DAILY
     Route: 048
     Dates: start: 20090208, end: 20090218

REACTIONS (3)
  - CONVULSION [None]
  - INSOMNIA [None]
  - MALAISE [None]
